FAERS Safety Report 14267899 (Version 3)
Quarter: 2018Q3

REPORT INFORMATION
  Report Type: Report from Study
  Country: IE (occurrence: IE)
  Receive Date: 20171211
  Receipt Date: 20180925
  Transmission Date: 20181010
  Serious: Yes (Death, Hospitalization, Other)
  Sender: FDA-Public Use
  Company Number: PHHY2017IE183169

PATIENT
  Age: 49 Year
  Sex: Female

DRUGS (9)
  1. DABRAFENIB [Suspect]
     Active Substance: DABRAFENIB
     Indication: MALIGNANT MELANOMA
     Dosage: UNK
     Route: 065
  2. DABRAFENIB [Suspect]
     Active Substance: DABRAFENIB
     Dosage: 50 MG, BID
     Route: 065
     Dates: start: 201612
  3. DABRAFENIB [Suspect]
     Active Substance: DABRAFENIB
     Dosage: REDUCED TO 75 PERCENT
     Route: 065
     Dates: start: 201611
  4. DABRAFENIB [Suspect]
     Active Substance: DABRAFENIB
     Dosage: 100 MG, BID
     Route: 065
     Dates: start: 201611
  5. TRAMETINIB [Suspect]
     Active Substance: TRAMETINIB
     Dosage: 2 MG, QD
     Route: 065
     Dates: start: 201612, end: 201705
  6. ZOMETA [Suspect]
     Active Substance: ZOLEDRONIC ACID
     Indication: MALIGNANT MELANOMA
     Route: 065
  7. TRAMETINIB [Suspect]
     Active Substance: TRAMETINIB
     Indication: MALIGNANT MELANOMA
     Dosage: UNK
     Route: 065
  8. PREDNISOLONE. [Suspect]
     Active Substance: PREDNISOLONE
     Indication: PRODUCT USED FOR UNKNOWN INDICATION
     Route: 065
  9. DABRAFENIB [Suspect]
     Active Substance: DABRAFENIB
     Dosage: 100 MG, BID
     Route: 065
     Dates: end: 201705

REACTIONS (15)
  - Diarrhoea [Unknown]
  - Drug tolerance decreased [Unknown]
  - Nausea [Not Recovered/Not Resolved]
  - Vomiting [Unknown]
  - Pyrexia [Unknown]
  - Hypocalcaemia [Unknown]
  - Malignant melanoma [Unknown]
  - Death [Fatal]
  - Metastases to central nervous system [Unknown]
  - Chills [Not Recovered/Not Resolved]
  - Liver function test increased [Unknown]
  - Seizure [Unknown]
  - Cerebral haemorrhage [Unknown]
  - Renal failure [Unknown]
  - Malignant neoplasm progression [Unknown]

NARRATIVE: CASE EVENT DATE: 201611
